FAERS Safety Report 4300948-2 (Version None)
Quarter: 2004Q1

REPORT INFORMATION
  Report Type: 
  Country: None (occurrence: None)
  Receive Date: 20040219
  Receipt Date: 20040205
  Transmission Date: 20041129
  Serious: Yes (Hospitalization)
  Sender: FDA-Public Use
  Company Number: 2003164421JP

PATIENT
  Age: 54 Year
  Sex: Female

DRUGS (8)
  1. LUVOX [Suspect]
     Indication: DEPRESSION
     Dosage: 50 MG/DAY, ORAL : 100 MG/DAY, ORAL : 150 MG/DAY, ORAL
     Route: 048
     Dates: start: 20020315, end: 20020317
  2. LUVOX [Suspect]
     Indication: DEPRESSION
     Dosage: 50 MG/DAY, ORAL : 100 MG/DAY, ORAL : 150 MG/DAY, ORAL
     Route: 048
     Dates: start: 20020318, end: 20020320
  3. LUVOX [Suspect]
     Indication: DEPRESSION
     Dosage: 50 MG/DAY, ORAL : 100 MG/DAY, ORAL : 150 MG/DAY, ORAL
     Route: 048
     Dates: start: 20020521, end: 20021015
  4. TETRAMIDE(MIANSERIN HYDROCHLORIDE) [Suspect]
     Indication: DEPRESSION
     Dosage: 20MG/DAY , ORAL
     Route: 048
     Dates: start: 20011201
  5. ROHYPNOL(FLUNITRAZEPAM) [Suspect]
     Indication: DEPRESSION
     Dosage: 2 MG/DAY, ORAL
     Route: 048
     Dates: start: 20020214
  6. ALPRAZOLAM [Suspect]
     Indication: DEPRESSION
     Dosage: 2.4 MG/DAY, ORAL  : 1.2 MG/DAY ORAL
     Route: 048
     Dates: start: 20020228, end: 20020312
  7. ALPRAZOLAM [Suspect]
     Indication: DEPRESSION
     Dosage: 2.4 MG/DAY, ORAL  : 1.2 MG/DAY ORAL
     Route: 048
     Dates: start: 20020313
  8. MILNACIPRAN [Concomitant]

REACTIONS (6)
  - ALANINE AMINOTRANSFERASE INCREASED [None]
  - ASPARTATE AMINOTRANSFERASE INCREASED [None]
  - BLOOD LACTATE DEHYDROGENASE INCREASED [None]
  - C-REACTIVE PROTEIN INCREASED [None]
  - GAMMA-GLUTAMYLTRANSFERASE INCREASED [None]
  - HEPATIC FUNCTION ABNORMAL [None]
